FAERS Safety Report 23771217 (Version 2)
Quarter: 2024Q2

REPORT INFORMATION
  Report Type: Report from Study
  Country: US (occurrence: US)
  Receive Date: 20240423
  Receipt Date: 20240604
  Transmission Date: 20240715
  Serious: No
  Sender: FDA-Public Use
  Company Number: US-AstraZeneca-CH-00607465A

PATIENT
  Sex: Male

DRUGS (1)
  1. ULTOMIRIS [Suspect]
     Active Substance: RAVULIZUMAB-CWVZ
     Indication: Myasthenia gravis
     Dosage: UNK
     Route: 042

REACTIONS (7)
  - Oxygen saturation decreased [Unknown]
  - Epistaxis [Unknown]
  - Contusion [Unknown]
  - Prostatic disorder [Unknown]
  - Inappropriate schedule of product administration [Unknown]
  - Diplopia [Unknown]
  - Fatigue [Unknown]
